FAERS Safety Report 24949695 (Version 1)
Quarter: 2025Q1

REPORT INFORMATION
  Report Type: Report from Study
  Country: US (occurrence: US)
  Receive Date: 20250210
  Receipt Date: 20250210
  Transmission Date: 20250409
  Serious: Yes (Hospitalization)
  Sender: XERIS PHARMACEUTICALS
  Company Number: US-BRIAN CONNER SVP QUALITY AND CHIEF COMPLIANCE OFFICER-2025XER00075

PATIENT
  Sex: Female

DRUGS (2)
  1. KEVEYIS [Suspect]
     Active Substance: DICHLORPHENAMIDE
     Indication: Paralysis
     Route: 048
     Dates: start: 20221203
  2. KEVEYIS [Suspect]
     Active Substance: DICHLORPHENAMIDE
     Dosage: 50 MG, 3X/DAY
     Route: 048
     Dates: start: 20230707

REACTIONS (3)
  - Hospitalisation [Unknown]
  - Illness [Not Recovered/Not Resolved]
  - Product use issue [Not Recovered/Not Resolved]
